FAERS Safety Report 7279354-7 (Version None)
Quarter: 2011Q1

REPORT INFORMATION
  Report Type: 
  Country: None (occurrence: None)
  Receive Date: 20110208
  Receipt Date: 20110127
  Transmission Date: 20110831
  Serious: Yes (Death, Other)
  Sender: FDA-Public Use
  Company Number: JP-AMGEN-JPNSP2010011096

PATIENT
  Age: 74 Year
  Sex: Male

DRUGS (6)
  1. ENBREL [Suspect]
     Indication: RHEUMATOID ARTHRITIS
     Dosage: 25 MG, 2 TIMES/WK
     Route: 058
     Dates: start: 20060403
  2. RHEUMATREX [Suspect]
     Dosage: 2MG TWICE WEEKLY
     Route: 048
  3. RHEUMATREX [Suspect]
     Indication: RHEUMATOID ARTHRITIS
     Dosage: 2 MG TWICE DAILY PER WEEK
     Route: 048
     Dates: start: 20051013
  4. KLARICID [Concomitant]
     Indication: OBLITERATIVE BRONCHIOLITIS
     Dosage: 200 MG, 1X/DAY
     Route: 048
     Dates: start: 20051013
  5. TALION                             /01587401/ [Concomitant]
     Indication: RHINITIS ALLERGIC
     Dosage: 10 MG, 2X/DAY
     Route: 048
     Dates: start: 20100216
  6. INFLUENZA VACCINE [Concomitant]
     Dosage: UNK
     Dates: start: 20101104, end: 20101104

REACTIONS (5)
  - HYPOXIA [None]
  - ASCITES [None]
  - CARDIAC ARREST [None]
  - FALL [None]
  - MULTI-ORGAN FAILURE [None]
